FAERS Safety Report 10753683 (Version 2)
Quarter: 2015Q1

REPORT INFORMATION
  Report Type: Spontaneous
  Country: AU (occurrence: AU)
  Receive Date: 20150201
  Receipt Date: 20150212
  Transmission Date: 20150721
  Serious: Yes (Hospitalization, Other)
  Sender: FDA-Public Use
  Company Number: PHHY2015AU010581

PATIENT
  Age: 68 Year
  Sex: Male

DRUGS (2)
  1. ACLASTA [Suspect]
     Active Substance: ZOLEDRONIC ACID
     Indication: BONE DISORDER
     Dosage: 5 MG, UNK
     Route: 042
     Dates: start: 20150108, end: 20150108
  2. ACLASTA [Suspect]
     Active Substance: ZOLEDRONIC ACID
     Indication: OSTEOPOROSIS

REACTIONS (15)
  - Grip strength decreased [Recovering/Resolving]
  - Gait disturbance [Unknown]
  - Fall [Unknown]
  - Red blood cell sedimentation rate increased [Unknown]
  - C-reactive protein increased [Unknown]
  - Abasia [Recovering/Resolving]
  - Dysstasia [Recovering/Resolving]
  - Balance disorder [Unknown]
  - Asthenia [Unknown]
  - Blood magnesium decreased [Unknown]
  - Movement disorder [Recovering/Resolving]
  - Muscular weakness [Recovering/Resolving]
  - Dyspnoea [Recovered/Resolved]
  - Fatigue [Unknown]
  - Myalgia [Unknown]

NARRATIVE: CASE EVENT DATE: 20150110
